FAERS Safety Report 5892793-1 (Version None)
Quarter: 2008Q3

REPORT INFORMATION
  Report Type: 
  Country: None (occurrence: None)
  Receive Date: 20080922
  Receipt Date: 20080922
  Transmission Date: 20090109
  Serious: No
  Sender: FDA-Public Use
  Company Number: None

PATIENT
  Age: 42 Year
  Sex: Female
  Weight: 136.0791 kg

DRUGS (2)
  1. CYMBALTA [Suspect]
     Indication: ANTIDEPRESSANT THERAPY
     Dosage: 2 CAPSULE DAILY PO
     Route: 048
     Dates: start: 20080715, end: 20080922
  2. EFFEXOR [Suspect]
     Indication: ANTIDEPRESSANT THERAPY
     Dosage: 375 MG DAILY PO
     Route: 048
     Dates: start: 19970101, end: 19980101

REACTIONS (8)
  - DRUG WITHDRAWAL SYNDROME [None]
  - FIBROMYALGIA [None]
  - GAIT DISTURBANCE [None]
  - INFLUENZA LIKE ILLNESS [None]
  - MALAISE [None]
  - MANIA [None]
  - MUSCULAR WEAKNESS [None]
  - MYALGIA [None]
